FAERS Safety Report 9187661 (Version 2)
Quarter: 2013Q2

REPORT INFORMATION
  Report Type: Spontaneous
  Country: CN (occurrence: CN)
  Receive Date: 20130325
  Receipt Date: 20130501
  Transmission Date: 20140414
  Serious: No
  Sender: FDA-Public Use
  Company Number: CN-ASTELLAS-2013JP004171

PATIENT
  Age: 32 Year
  Sex: Female

DRUGS (1)
  1. VESICARE [Suspect]
     Dosage: UNK
     Route: 048
     Dates: start: 2011, end: 201302

REACTIONS (2)
  - Urinary incontinence [Not Recovered/Not Resolved]
  - Neurodermatitis [Recovering/Resolving]
